FAERS Safety Report 9051320 (Version 1)
Quarter: 2013Q1

REPORT INFORMATION
  Report Type: Spontaneous
  Country: JP (occurrence: JP)
  Receive Date: 20130206
  Receipt Date: 20130206
  Transmission Date: 20140127
  Serious: Yes (Hospitalization)
  Sender: FDA-Public Use
  Company Number: JP-009507513-1204USA01840

PATIENT
  Age: 64 Year
  Sex: Female

DRUGS (2)
  1. BONALON [Suspect]
     Indication: OSTEOPOROSIS
     Dosage: 35 MG, QW
     Route: 048
     Dates: start: 20090129, end: 20111201
  2. SHA-KANZO-TO [Concomitant]
     Indication: PAIN
     Dosage: 7.5 G, QD
     Route: 048

REACTIONS (1)
  - Pancreatic carcinoma [Recovering/Resolving]
